FAERS Safety Report 16972053 (Version 3)
Quarter: 2021Q3

REPORT INFORMATION
  Report Type: Spontaneous
  Country: JP (occurrence: JP)
  Receive Date: 20191029
  Receipt Date: 20210809
  Transmission Date: 20211014
  Serious: Yes (Other)
  Sender: FDA-Public Use
  Company Number: JP-ALLERGAN-1943142US

PATIENT
  Sex: Male

DRUGS (4)
  1. COSOPT [Concomitant]
     Active Substance: DORZOLAMIDE HYDROCHLORIDE\TIMOLOL MALEATE
     Indication: GLAUCOMA
     Dosage: 2 GTT, QD
     Route: 047
  2. ALPHAGAN P [Suspect]
     Active Substance: BRIMONIDINE TARTRATE
     Indication: GLAUCOMA
     Dosage: 2 GTT, BID
     Route: 047
     Dates: start: 20121108, end: 20191015
  3. LUMIGAN [Suspect]
     Active Substance: BIMATOPROST
     Indication: GLAUCOMA
     Dosage: 1 GTT, QD
     Route: 047
  4. GLANATEC [Concomitant]
     Active Substance: RIPASUDIL HYDROCHLORIDE DIHYDRATE
     Indication: GLAUCOMA
     Dosage: 2 GTT, QD
     Route: 047
     Dates: start: 20180426

REACTIONS (1)
  - Corneal opacity [Not Recovered/Not Resolved]

NARRATIVE: CASE EVENT DATE: 20191006
